FAERS Safety Report 5041905-0 (Version None)
Quarter: 2006Q2

REPORT INFORMATION
  Report Type: 
  Country: None (occurrence: None)
  Receive Date: 20060630
  Receipt Date: 20060619
  Transmission Date: 20061013
  Serious: Yes (Hospitalization)
  Sender: FDA-Public Use
  Company Number: MEDI-0004045

PATIENT
  Age: 38 Year
  Sex: Male

DRUGS (14)
  1. ETHYOL [Suspect]
     Indication: CHEMOTHERAPY
     Dosage: GIVEN 20 MIN PRIOR TO RT IN 2.5 ML IN NS, SUBCUTANEOUS
     Route: 058
     Dates: start: 20050824, end: 20050920
  2. ETHYOL [Suspect]
     Indication: RADIOTHERAPY
     Dosage: GIVEN 20 MIN PRIOR TO RT IN 2.5 ML IN NS, SUBCUTANEOUS
     Route: 058
     Dates: start: 20050824, end: 20050920
  3. RADIATION THERAPY [Concomitant]
  4. CISPLATIN [Concomitant]
  5. FLUOROURACIL [Concomitant]
  6. EMEND [Concomitant]
  7. KYTRIL [Concomitant]
  8. DEXAMETHASONE [Concomitant]
  9. LORAZEPAM [Concomitant]
  10. COMPAZINE [Concomitant]
  11. PREVACID [Concomitant]
  12. ZOFRAN [Concomitant]
  13. PHENERGAN HCL [Concomitant]
  14. TPN (PYRIDOXINE HYDROCHLORIDE, TYROSINE, NICOTINAMIDE) [Concomitant]

REACTIONS (15)
  - ANXIETY [None]
  - BACTERIAL INFECTION [None]
  - CENTRAL LINE INFECTION [None]
  - CHOLECYSTITIS INFECTIVE [None]
  - CONSTIPATION [None]
  - DEHYDRATION [None]
  - EROSIVE OESOPHAGITIS [None]
  - FUNGAL INFECTION [None]
  - HEART RATE INCREASED [None]
  - HYPOTENSION [None]
  - LIP ULCERATION [None]
  - ORAL MUCOSAL EXFOLIATION [None]
  - PRODUCTIVE COUGH [None]
  - RADIATION MUCOSITIS [None]
  - STAPHYLOCOCCAL SEPSIS [None]
